FAERS Safety Report 6052853-1 (Version None)
Quarter: 2009Q1

REPORT INFORMATION
  Report Type: 
  Country: None (occurrence: None)
  Receive Date: 20090127
  Receipt Date: 20090114
  Transmission Date: 20090719
  Serious: Yes (Hospitalization)
  Sender: FDA-Public Use
  Company Number: PHHY2009MX01763

PATIENT
  Age: 61 Year
  Sex: Female

DRUGS (2)
  1. ZELMAC [Suspect]
     Indication: IRRITABLE BOWEL SYNDROME
     Dosage: 2 TABLETS (6 MG) /DAY
     Route: 048
     Dates: start: 20030301, end: 20060601
  2. ZELMAC [Suspect]
     Dosage: UNK
     Route: 048
     Dates: start: 20090112

REACTIONS (2)
  - CHOLECYSTECTOMY [None]
  - CHOLELITHIASIS [None]
